FAERS Safety Report 7864548-X (Version None)
Quarter: 2011Q4

REPORT INFORMATION
  Report Type: 
  Country: None (occurrence: None)
  Receive Date: 20111028
  Receipt Date: 20111024
  Transmission Date: 20120403
  Serious: Yes (Other)
  Sender: FDA-Public Use
  Company Number: US-PFIZER INC-2011258437

PATIENT
  Sex: Female
  Weight: 104.31 kg

DRUGS (15)
  1. CYMBALTA [Concomitant]
     Indication: DEPRESSION
     Dosage: 50 MG, DAILY
  2. FLEXERIL [Concomitant]
     Indication: MUSCLE SPASMS
     Dosage: 10 MG, 3X/DAY
  3. PRILOSEC [Concomitant]
     Indication: GASTROOESOPHAGEAL REFLUX DISEASE
     Dosage: 40 MG, DAILY
  4. ZETIA [Concomitant]
     Indication: BLOOD CHOLESTEROL INCREASED
     Dosage: 10 MG, DAILY
  5. AMBIEN [Concomitant]
     Indication: INSOMNIA
     Dosage: 10 MG, DAILY
  6. ADDERALL 5 [Concomitant]
     Indication: NARCOLEPSY
     Dosage: 250 MG, DAILY
  7. KLONOPIN [Concomitant]
     Indication: ANXIETY
     Dosage: 0.5 MG, 2X/DAY
  8. INDERAL [Concomitant]
     Indication: HYPERTENSION
     Dosage: 40 MG, DAILY
  9. ZOCOR [Concomitant]
     Indication: BLOOD CHOLESTEROL INCREASED
     Dosage: 40 MG, DAILY
  10. VITAMIN D [Concomitant]
     Indication: SUPPLEMENTATION THERAPY
     Dosage: 1000 MG, DAILY
  11. XANAX [Suspect]
     Indication: ANXIETY DISORDER
     Dosage: 2 MG, 4X/DAY
     Route: 048
     Dates: start: 19970101, end: 20110101
  12. PROMETHAZINE [Concomitant]
     Indication: MYALGIA
     Dosage: 50 MG, FOUR TIMES A NEEDED
  13. ZOLOFT [Concomitant]
     Indication: OBSESSIVE-COMPULSIVE DISORDER
     Dosage: 200 MG, DAILY
  14. KLONOPIN [Concomitant]
     Indication: PANIC ATTACK
  15. FOLIC ACID [Concomitant]
     Dosage: 400 MG, DAILY

REACTIONS (1)
  - DRUG WITHDRAWAL CONVULSIONS [None]
